FAERS Safety Report 17214159 (Version 1)
Quarter: 2019Q4

REPORT INFORMATION
  Report Type: Spontaneous
  Country: US (occurrence: US)
  Receive Date: 20191206
  Receipt Date: 20191206
  Transmission Date: 20200122
  Serious: No
  Sender: FDA-Public Use
  Company Number: None

PATIENT
  Age: 65 Year
  Sex: Female
  Weight: 68.04 kg

DRUGS (1)
  1. IBRANCE [Suspect]
     Active Substance: PALBOCICLIB
     Indication: BREAST CANCER
     Dosage: 125MG DAILY ON DAYS 1-21 EVERY 28 DAYS  ORAL?
     Route: 048

REACTIONS (2)
  - Lacrimation increased [None]
  - Eye irritation [None]

NARRATIVE: CASE EVENT DATE: 20191206
